FAERS Safety Report 4372934-8 (Version None)
Quarter: 2004Q2

REPORT INFORMATION
  Report Type: 
  Country: None (occurrence: None)
  Receive Date: 20040603
  Receipt Date: 20040520
  Transmission Date: 20050107
  Serious: Yes (Hospitalization)
  Sender: FDA-Public Use
  Company Number: 2004-BP-03903AU

PATIENT
  Age: 82 Year
  Sex: Male

DRUGS (1)
  1. MOBIC [Suspect]
     Dosage: 15 MG, PO
     Route: 048
     Dates: start: 20040414

REACTIONS (2)
  - ATRIAL FIBRILLATION [None]
  - DUODENAL ULCER PERFORATION [None]
